FAERS Safety Report 24765632 (Version 1)
Quarter: 2024Q4

REPORT INFORMATION
  Report Type: Spontaneous
  Country: US (occurrence: None)
  Receive Date: 20241220
  Receipt Date: 20241220
  Transmission Date: 20250115
  Serious: No
  Sender: Public
  Company Number: None

PATIENT
  Age: 62 Year
  Sex: Female

DRUGS (4)
  1. TERIPARATIDE [Suspect]
     Active Substance: TERIPARATIDE
     Indication: Senile osteoporosis
     Dosage: 20MCG 1 TIME A DAY SUBQ?
     Route: 058
     Dates: start: 202408
  2. FORTEO [Concomitant]
     Active Substance: TERIPARATIDE
  3. VALCYCLOI/IR [Concomitant]
  4. PREDlSONE [Concomitant]

REACTIONS (2)
  - Hemiplegia [None]
  - Herpes zoster [None]

NARRATIVE: CASE EVENT DATE: 20241219
